FAERS Safety Report 5276836-4 (Version None)
Quarter: 2007Q1

REPORT INFORMATION
  Report Type: 
  Country: None (occurrence: None)
  Receive Date: 20070327
  Receipt Date: 20070322
  Transmission Date: 20070707
  Serious: Yes (Hospitalization)
  Sender: FDA-Public Use
  Company Number: US-BRISTOL-MYERS SQUIBB COMPANY-13723739

PATIENT
  Age: 80 Year
  Sex: Female
  Weight: 74 kg

DRUGS (5)
  1. COUMADIN [Suspect]
     Indication: ARRHYTHMIA
     Dosage: 4 MG TAB 3 TIMES/WK AND 2 MG REMAINING DAYS; THEN 4 MG TWICE/WK AND 2 MG REMAINING DAYS
     Dates: start: 20060501
  2. PLAVIX [Suspect]
  3. TOPROL-XL [Suspect]
  4. ASPIRIN [Concomitant]
  5. TYLENOL [Concomitant]

REACTIONS (5)
  - BURNING SENSATION [None]
  - EPISTAXIS [None]
  - INSOMNIA [None]
  - OEDEMA PERIPHERAL [None]
  - PAIN IN EXTREMITY [None]
